FAERS Safety Report 12784486 (Version 1)
Quarter: 2016Q3

REPORT INFORMATION
  Report Type: Spontaneous
  Country: FR (occurrence: FR)
  Receive Date: 20160927
  Receipt Date: 20160927
  Transmission Date: 20161109
  Serious: Yes (Hospitalization)
  Sender: FDA-Public Use
  Company Number: FR-PFIZER INC-2016441284

PATIENT
  Age: 58 Year
  Sex: Male

DRUGS (1)
  1. XANAX [Suspect]
     Active Substance: ALPRAZOLAM
     Dosage: 20 DF, 1X/DAY
     Route: 048

REACTIONS (3)
  - Overdose [Unknown]
  - Drug dependence [Recovering/Resolving]
  - Alcohol withdrawal syndrome [Not Recovered/Not Resolved]
